FAERS Safety Report 13856102 (Version 3)
Quarter: 2020Q3

REPORT INFORMATION
  Report Type: Report from Study
  Country: CA (occurrence: CA)
  Receive Date: 20170810
  Receipt Date: 20171016
  Transmission Date: 20201105
  Serious: Yes (Death, Hospitalization)
  Sender: FDA-Public Use
  Company Number: CA-ASTRAZENECA-2017SE80013

PATIENT
  Age: 64 Year
  Sex: Female

DRUGS (11)
  1. DALTEPARIN [Concomitant]
     Active Substance: DALTEPARIN
     Route: 065
     Dates: start: 20170803
  2. TREMELIMUMAB. [Suspect]
     Active Substance: TREMELIMUMAB
     Indication: ANAL SQUAMOUS CELL CARCINOMA
     Route: 042
     Dates: start: 20170628
  3. LEVOTHYROXINE. [Concomitant]
     Active Substance: LEVOTHYROXINE
     Route: 065
     Dates: start: 20170725
  4. RABEPRAZOLE [Concomitant]
     Active Substance: RABEPRAZOLE
     Route: 065
     Dates: start: 20170803
  5. PREDNISONE. [Concomitant]
     Active Substance: PREDNISONE
     Route: 065
     Dates: start: 20170731, end: 20170802
  6. DURVALUMAB. [Suspect]
     Active Substance: DURVALUMAB
     Indication: ANAL SQUAMOUS CELL CARCINOMA
     Route: 042
     Dates: start: 20170628
  7. OMEGA 3 [Concomitant]
     Active Substance: OMEGA-3 FATTY ACIDS
     Route: 065
     Dates: start: 20170622
  8. MULTIVITAMIN [Concomitant]
     Active Substance: VITAMINS
     Route: 065
     Dates: start: 20170217
  9. METHYLPREDNISOLONE. [Concomitant]
     Active Substance: METHYLPREDNISOLONE
     Route: 065
     Dates: start: 20170725, end: 20170728
  10. PREDNISONE. [Concomitant]
     Active Substance: PREDNISONE
     Route: 065
     Dates: start: 20170729, end: 20170730
  11. METHYLPREDNISOLONE. [Concomitant]
     Active Substance: METHYLPREDNISOLONE
     Route: 065
     Dates: start: 20170803

REACTIONS (5)
  - Anaemia [Unknown]
  - Aspartate aminotransferase increased [Not Recovered/Not Resolved]
  - Alanine aminotransferase increased [Not Recovered/Not Resolved]
  - Malignant neoplasm progression [Fatal]
  - Blood bilirubin increased [Not Recovered/Not Resolved]

NARRATIVE: CASE EVENT DATE: 20170803
